FAERS Safety Report 8588013-X (Version None)
Quarter: 2012Q3

REPORT INFORMATION
  Report Type: 
  Country: None (occurrence: None)
  Receive Date: 20120813
  Receipt Date: 20120807
  Transmission Date: 20120928
  Serious: Yes (Hospitalization)
  Sender: FDA-Public Use
  Company Number: US-009507513-1208USA003326

PATIENT

DRUGS (9)
  1. ATRIPLA [Concomitant]
  2. SAPHRIS [Suspect]
     Dosage: 5 MG, UNK
     Route: 048
  3. PROZAC [Concomitant]
  4. TYLENOL [Concomitant]
  5. CODEINE SULFATE [Concomitant]
  6. CONCERTA [Concomitant]
  7. GABAPENTIN [Concomitant]
  8. INDERAL [Concomitant]
  9. SAPHRIS [Suspect]
     Indication: BIPOLAR DISORDER
     Dosage: 5 DF, ONCE
     Route: 048

REACTIONS (2)
  - SUICIDE ATTEMPT [None]
  - OVERDOSE [None]
